FAERS Safety Report 21308176 (Version 2)
Quarter: 2022Q3

REPORT INFORMATION
  Report Type: Spontaneous
  Country: US (occurrence: US)
  Receive Date: 20220908
  Receipt Date: 20220927
  Transmission Date: 20221027
  Serious: Yes (Hospitalization, Other)
  Sender: FDA-Public Use
  Company Number: US-BIOVITRUM-2022US10118

PATIENT
  Age: 70 Year
  Sex: Female

DRUGS (6)
  1. DOPTELET [Suspect]
     Active Substance: AVATROMBOPAG MALEATE
     Indication: Immune thrombocytopenia
     Dosage: 3X WEEK, MONDAY, WEDNESDAY, FRIDAY
  2. DOPTELET [Suspect]
     Active Substance: AVATROMBOPAG MALEATE
  3. DOPTELET [Suspect]
     Active Substance: AVATROMBOPAG MALEATE
  4. DOPTELET [Suspect]
     Active Substance: AVATROMBOPAG MALEATE
  5. DOPTELET [Suspect]
     Active Substance: AVATROMBOPAG MALEATE
     Dates: start: 202205
  6. PREDNISONE [Concomitant]
     Active Substance: PREDNISONE

REACTIONS (9)
  - Haematoma [Unknown]
  - Neuropathy peripheral [Unknown]
  - Platelet count abnormal [Unknown]
  - Rash macular [Unknown]
  - COVID-19 [Unknown]
  - Skin atrophy [Unknown]
  - Peroneal nerve palsy [Unknown]
  - Contusion [Unknown]
  - Fatigue [Unknown]

NARRATIVE: CASE EVENT DATE: 20110701
